FAERS Safety Report 4640630-5 (Version None)
Quarter: 2005Q2

REPORT INFORMATION
  Report Type: 
  Country: None (occurrence: None)
  Receive Date: 20050419
  Receipt Date: 20050405
  Transmission Date: 20051028
  Serious: Yes (Hospitalization)
  Sender: FDA-Public Use
  Company Number: 2005047943

PATIENT
  Age: 66 Year
  Sex: Female
  Weight: 99 kg

DRUGS (4)
  1. LYRICA [Suspect]
     Indication: NEUROPATHY PERIPHERAL
     Dosage: 150 MG (1 IN 1 D), ORAL
     Route: 048
     Dates: start: 20050201, end: 20050323
  2. MORPHINE SULFATE [Suspect]
     Indication: BACK PAIN
     Dosage: 120 MG (1 IN 1 D), ORAL
     Route: 048
     Dates: end: 20050323
  3. ENALAPRIL MALEATE [Concomitant]
  4. BISOPROLOL (BISOPROLOL) [Concomitant]

REACTIONS (7)
  - CLONUS [None]
  - COMA [None]
  - DEHYDRATION [None]
  - OVERDOSE [None]
  - RENAL FAILURE [None]
  - SEDATION [None]
  - SOMNOLENCE [None]
